FAERS Safety Report 4702949-9 (Version None)
Quarter: 2005Q2

REPORT INFORMATION
  Report Type: 
  Country: None (occurrence: None)
  Receive Date: 20050624
  Receipt Date: 20050329
  Transmission Date: 20051028
  Serious: No
  Sender: FDA-Public Use
  Company Number: 2005BI004574

PATIENT
  Sex: Female

DRUGS (8)
  1. NATALIZUMAB [Suspect]
     Indication: MULTIPLE SCLEROSIS
     Dosage: 300 MG; IV
     Route: 042
     Dates: start: 20050203, end: 20050201
  2. REBIF [Concomitant]
  3. DITROPAN XL [Concomitant]
  4. BACLOFEN [Concomitant]
  5. XANAX [Concomitant]
  6. HIPREX [Concomitant]
  7. CLONOPIN [Concomitant]
  8. METHOTREXATE [Concomitant]

REACTIONS (2)
  - FEELING ABNORMAL [None]
  - URINARY TRACT INFECTION [None]
